FAERS Safety Report 15939019 (Version 2)
Quarter: 2019Q2

REPORT INFORMATION
  Report Type: Spontaneous
  Country: US (occurrence: US)
  Receive Date: 20190208
  Receipt Date: 20190409
  Transmission Date: 20190711
  Serious: Yes (Other)
  Sender: FDA-Public Use
  Company Number: US-ASTRAZENECA-2018SE99883

PATIENT
  Age: 25517 Day
  Sex: Male
  Weight: 99.8 kg

DRUGS (25)
  1. PRADAXA [Concomitant]
     Active Substance: DABIGATRAN ETEXILATE MESYLATE
     Dates: start: 20141222
  2. NEXIUM [Suspect]
     Active Substance: ESOMEPRAZOLE MAGNESIUM
     Indication: GASTROOESOPHAGEAL REFLUX DISEASE
     Route: 048
     Dates: start: 1999, end: 2015
  3. PREVACID [Suspect]
     Active Substance: LANSOPRAZOLE
     Indication: PEPTIC ULCER
     Route: 048
     Dates: start: 20150327
  4. FUROSEMIDE. [Concomitant]
     Active Substance: FUROSEMIDE
     Dates: start: 20141222
  5. PREVACID [Suspect]
     Active Substance: LANSOPRAZOLE
     Indication: PEPTIC ULCER
     Route: 065
     Dates: start: 1999, end: 2015
  6. DOXAZOSIN MESILATE [Concomitant]
     Active Substance: DOXAZOSIN MESYLATE
     Dates: start: 20141222
  7. CIPROFLOXACIN. [Concomitant]
     Active Substance: CIPROFLOXACIN
  8. CEPHALEXIN. [Concomitant]
     Active Substance: CEPHALEXIN
  9. POSACONAZOLE [Concomitant]
     Active Substance: POSACONAZOLE
  10. PROSCAR [Concomitant]
     Active Substance: FINASTERIDE
     Dates: start: 20141222
  11. PRILOSEC [Suspect]
     Active Substance: OMEPRAZOLE MAGNESIUM
     Indication: GASTROOESOPHAGEAL REFLUX DISEASE
     Route: 048
     Dates: start: 20141222
  12. PREDNISONE. [Concomitant]
     Active Substance: PREDNISONE
     Dates: start: 20141222
  13. FLECAINIDE [Concomitant]
     Active Substance: FLECAINIDE
     Dates: start: 20141222
  14. RANITIDINE. [Suspect]
     Active Substance: RANITIDINE
     Route: 065
  15. FEBUXOSTAT. [Concomitant]
     Active Substance: FEBUXOSTAT
     Dates: start: 20141222
  16. NEXIUM 24HR [Suspect]
     Active Substance: ESOMEPRAZOLE MAGNESIUM
     Indication: GASTROOESOPHAGEAL REFLUX DISEASE
     Route: 048
  17. PROTONIX [Suspect]
     Active Substance: PANTOPRAZOLE SODIUM
     Route: 065
     Dates: start: 1999, end: 2015
  18. SYNTHROID [Concomitant]
     Active Substance: LEVOTHYROXINE SODIUM
     Dates: start: 20141222
  19. CALCITRIOL. [Concomitant]
     Active Substance: CALCITRIOL
     Dates: start: 20141222
  20. AMLODIPINE [Concomitant]
     Active Substance: AMLODIPINE BESYLATE
     Dates: start: 20141222
  21. ACYCLOVIR. [Concomitant]
     Active Substance: ACYCLOVIR
  22. PRILOSEC [Suspect]
     Active Substance: OMEPRAZOLE MAGNESIUM
     Indication: GASTROOESOPHAGEAL REFLUX DISEASE
     Route: 048
     Dates: start: 1999, end: 2015
  23. PROTONIX [Suspect]
     Active Substance: PANTOPRAZOLE SODIUM
     Route: 065
     Dates: start: 20150320
  24. DIOVAN [Concomitant]
     Active Substance: VALSARTAN
     Dates: start: 20141222
  25. IMATINIB. [Concomitant]
     Active Substance: IMATINIB MESYLATE

REACTIONS (5)
  - Chronic kidney disease [Unknown]
  - Tubulointerstitial nephritis [Unknown]
  - End stage renal disease [Unknown]
  - Acute kidney injury [Unknown]
  - Renal failure [Not Recovered/Not Resolved]

NARRATIVE: CASE EVENT DATE: 20140912
